FAERS Safety Report 9474893 (Version 2)
Quarter: 2013Q3

REPORT INFORMATION
  Report Type: Spontaneous
  Country: US (occurrence: US)
  Receive Date: 20130823
  Receipt Date: 20130823
  Transmission Date: 20140515
  Serious: Yes (Hospitalization, Other)
  Sender: FDA-Public Use
  Company Number: US-ELI_LILLY_AND_COMPANY-US201306004108

PATIENT
  Sex: Female
  Weight: 92.52 kg

DRUGS (3)
  1. HUMULIN REGULAR [Suspect]
     Indication: BLOOD GLUCOSE INCREASED
     Dosage: 125 U, UNK
     Route: 058
     Dates: start: 20110411, end: 20130401
  2. HUMULIN REGULAR [Suspect]
     Dosage: 125 U, PRN
     Route: 058
     Dates: start: 20110411, end: 20130401
  3. LANTUS [Concomitant]
     Dosage: 50 U, EACH EVENING
     Route: 058

REACTIONS (2)
  - Hypoglycaemia [Recovered/Resolved with Sequelae]
  - Brain injury [Unknown]
